FAERS Safety Report 4595658-0 (Version None)
Quarter: 2005Q1

REPORT INFORMATION
  Report Type: 
  Country: None (occurrence: None)
  Receive Date: 20050223
  Receipt Date: 20050223
  Transmission Date: 20050727
  Serious: Yes (Hospitalization)
  Sender: FDA-Public Use
  Company Number: None

PATIENT
  Age: 49 Year
  Sex: Male
  Weight: 50.8029 kg

DRUGS (1)
  1. BC POWDER [Suspect]
     Indication: PAIN
     Dosage: 24 PK IN 1 WEEK

REACTIONS (1)
  - GASTROINTESTINAL HAEMORRHAGE [None]
